FAERS Safety Report 25533339 (Version 1)
Quarter: 2025Q3

REPORT INFORMATION
  Report Type: Spontaneous
  Country: JP (occurrence: JP)
  Receive Date: 20250709
  Receipt Date: 20250709
  Transmission Date: 20251021
  Serious: Yes (Hospitalization, Other)
  Sender: GE HEALTHCARE
  Company Number: JP-GEHPL-2025JSU001460AA

PATIENT
  Age: 74 Year
  Sex: Male
  Weight: 62 kg

DRUGS (1)
  1. OMNIPAQUE [Suspect]
     Active Substance: IOHEXOL
     Indication: Computerised tomogram abdomen
     Route: 042
     Dates: start: 20250204, end: 20250204

REACTIONS (3)
  - Anaphylactic shock [Recovered/Resolved]
  - Kounis syndrome [Recovered/Resolved]
  - Contraindicated product administered [Recovered/Resolved]

NARRATIVE: CASE EVENT DATE: 20250204
